FAERS Safety Report 5237802-8 (Version None)
Quarter: 2007Q1

REPORT INFORMATION
  Report Type: 
  Country: None (occurrence: None)
  Receive Date: 20070214
  Receipt Date: 20070201
  Transmission Date: 20070707
  Serious: Yes (Death, Hospitalization, Other)
  Sender: FDA-Public Use
  Company Number: GB-BRISTOL-MYERS SQUIBB COMPANY-13664388

PATIENT
  Age: 74 Year
  Sex: Female

DRUGS (2)
  1. MITOMYCIN-C BULK POWDER [Suspect]
     Indication: COLORECTAL CANCER
     Route: 040
  2. TOMUDEX [Suspect]
     Indication: COLORECTAL CANCER
     Route: 042

REACTIONS (4)
  - DIARRHOEA [None]
  - LETHARGY [None]
  - NEUTROPENIC SEPSIS [None]
  - RENAL FAILURE [None]
